FAERS Safety Report 21029510 (Version 2)
Quarter: 2022Q3

REPORT INFORMATION
  Report Type: Spontaneous
  Country: US (occurrence: US)
  Receive Date: 20220630
  Receipt Date: 20220713
  Transmission Date: 20221026
  Serious: No
  Sender: FDA-Public Use
  Company Number: US-IDORSIA-000624-2022-US

PATIENT
  Age: 83 Year
  Sex: Female

DRUGS (2)
  1. QUVIVIQ [Suspect]
     Active Substance: DARIDOREXANT
     Indication: Insomnia
     Dosage: 25 MG, QD (ONCE EVERY NIGHT)
     Route: 048
     Dates: start: 20220623, end: 20220626
  2. PLAVIX [Concomitant]
     Active Substance: CLOPIDOGREL BISULFATE
     Indication: Thrombosis
     Dosage: UNK

REACTIONS (7)
  - Paraesthesia [Recovered/Resolved]
  - Asthenia [Recovered/Resolved]
  - Muscular weakness [Not Recovered/Not Resolved]
  - Hypoaesthesia [Recovered/Resolved]
  - Therapeutic product effect incomplete [Recovered/Resolved]
  - Headache [Recovered/Resolved]
  - Hallucination [Recovered/Resolved]

NARRATIVE: CASE EVENT DATE: 20220623
